FAERS Safety Report 12389333 (Version 1)
Quarter: 2016Q2

REPORT INFORMATION
  Report Type: Spontaneous
  Country: US (occurrence: None)
  Receive Date: 20160519
  Receipt Date: 20160519
  Transmission Date: 20160815
  Serious: Yes (Death, Hospitalization)
  Sender: FDA-Public Use
  Company Number: None

PATIENT
  Age: 11 Day
  Sex: Male
  Weight: 4.4 kg

DRUGS (2)
  1. ETOPOSIDE (VP-16) [Suspect]
     Active Substance: ETOPOSIDE
     Dates: end: 20160507
  2. CARBOPLATIN. [Suspect]
     Active Substance: CARBOPLATIN
     Dates: end: 20160505

REACTIONS (10)
  - Sepsis [None]
  - Coagulopathy [None]
  - Respiratory disorder [None]
  - Metabolic acidosis [None]
  - Bacteraemia [None]
  - Hypotension [None]
  - Bilirubin conjugated increased [None]
  - Respiratory acidosis [None]
  - Abdominal compartment syndrome [None]
  - Blood culture positive [None]

NARRATIVE: CASE EVENT DATE: 20160512
